FAERS Safety Report 16885653 (Version 1)
Quarter: 2019Q4

REPORT INFORMATION
  Report Type: Spontaneous
  Country: FR (occurrence: FR)
  Receive Date: 20191004
  Receipt Date: 20191004
  Transmission Date: 20200122
  Serious: Yes (Life-Threatening, Other)
  Sender: FDA-Public Use
  Company Number: FR-MYLANLABS-2019M1092227

PATIENT
  Age: 17 Year
  Sex: Female
  Weight: 51 kg

DRUGS (2)
  1. TERCIAN                            /00759302/ [Suspect]
     Active Substance: CYAMEMAZINE
     Indication: PRODUCT USED FOR UNKNOWN INDICATION
     Dosage: UNK
     Route: 048
     Dates: start: 20190506
  2. IBUPROFEN. [Suspect]
     Active Substance: IBUPROFEN
     Indication: PRODUCT USED FOR UNKNOWN INDICATION
     Dosage: 9.2 GRAM
     Route: 048
     Dates: start: 20190506

REACTIONS (6)
  - Vomiting [Recovered/Resolved]
  - Coma [Recovered/Resolved]
  - Poisoning deliberate [Recovered/Resolved]
  - Toxicity to various agents [Unknown]
  - Anticholinergic syndrome [Recovered/Resolved]
  - Nausea [Recovered/Resolved]

NARRATIVE: CASE EVENT DATE: 20190506
